FAERS Safety Report 19831530 (Version 1)
Quarter: 2021Q3

REPORT INFORMATION
  Report Type: Spontaneous
  Country: US (occurrence: US)
  Receive Date: 20210915
  Receipt Date: 20210915
  Transmission Date: 20211014
  Serious: Yes (Other)
  Sender: FDA-Public Use
  Company Number: US-STRIDES ARCOLAB LIMITED-2021SP004551

PATIENT
  Age: 52 Year
  Sex: Female

DRUGS (4)
  1. ANTITHYMOCYTE IMMUNOGLOBULIN (HORSE) [Concomitant]
     Active Substance: EQUINE THYMOCYTE IMMUNE GLOBULIN
     Indication: APLASTIC ANAEMIA
     Dosage: UNK
     Route: 065
  2. TACROLIMUS. [Suspect]
     Active Substance: TACROLIMUS
     Dosage: 3 MILLIGRAM, BID. SECOND LINE THERAPY
     Route: 065
  3. TACROLIMUS. [Suspect]
     Active Substance: TACROLIMUS
     Indication: APLASTIC ANAEMIA
     Dosage: 3 MILLIGRAM, BID, FIRST LINE THERAPY
     Route: 065
  4. ELTROMBOPAG [Concomitant]
     Active Substance: ELTROMBOPAG
     Indication: APLASTIC ANAEMIA
     Dosage: UNK
     Route: 065

REACTIONS (2)
  - Drug ineffective for unapproved indication [Unknown]
  - Acute kidney injury [Recovered/Resolved]
